FAERS Safety Report 18058993 (Version 5)
Quarter: 2020Q3

REPORT INFORMATION
  Report Type: Spontaneous
  Country: US (occurrence: US)
  Receive Date: 20200723
  Receipt Date: 20200918
  Transmission Date: 20201103
  Serious: No
  Sender: FDA-Public Use
  Company Number: US-SA-2020SA188870

PATIENT

DRUGS (1)
  1. TOUJEO [Suspect]
     Active Substance: INSULIN GLARGINE
     Indication: TYPE 2 DIABETES MELLITUS
     Dosage: 80 UNITS AM/ 50 UNITS PM
     Route: 065

REACTIONS (2)
  - Wrong technique in device usage process [Unknown]
  - Inappropriate schedule of product administration [Unknown]
